FAERS Safety Report 5839969-7 (Version None)
Quarter: 2008Q3

REPORT INFORMATION
  Report Type: 
  Country: None (occurrence: None)
  Receive Date: 20080811
  Receipt Date: 20080801
  Transmission Date: 20090109
  Serious: Yes (Hospitalization, Other)
  Sender: FDA-Public Use
  Company Number: US-AMGEN-US294063

PATIENT
  Sex: Male
  Weight: 84.9 kg

DRUGS (11)
  1. PROCRIT [Suspect]
     Indication: RENAL FAILURE CHRONIC
     Route: 058
     Dates: start: 20061129, end: 20080430
  2. ARANESP [Suspect]
     Indication: RENAL FAILURE CHRONIC
     Route: 065
  3. METOPROLOL SUCCINATE [Concomitant]
     Route: 065
     Dates: start: 20030101
  4. WARFARIN SODIUM [Concomitant]
     Route: 065
     Dates: start: 20030101
  5. CALCITRIOL [Concomitant]
     Route: 065
     Dates: start: 20080101
  6. FUROSEMIDE [Concomitant]
     Route: 065
     Dates: start: 20080101
  7. LANTUS [Concomitant]
     Route: 065
     Dates: start: 20080101
  8. PRAVASTATIN [Concomitant]
     Route: 065
     Dates: start: 20080101
  9. ALLOPURINOL [Concomitant]
     Dates: start: 20060927, end: 20061126
  10. MYCOPHENOLATE MOFETIL [Concomitant]
     Dates: start: 20000919
  11. GABAPENTIN [Concomitant]

REACTIONS (3)
  - BONE MARROW FAILURE [None]
  - CARDIAC VALVE DISEASE [None]
  - THERAPEUTIC RESPONSE DECREASED [None]
